FAERS Safety Report 7367513-4 (Version None)
Quarter: 2011Q1

REPORT INFORMATION
  Report Type: 
  Country: None (occurrence: None)
  Receive Date: 20110322
  Receipt Date: 20100603
  Transmission Date: 20110831
  Serious: Yes (Hospitalization, Other)
  Sender: FDA-Public Use
  Company Number: US-BAYER-201013289NA

PATIENT
  Sex: Female
  Weight: 52.273 kg

DRUGS (1)
  1. YAZ [Suspect]
     Route: 048
     Dates: start: 20080501, end: 20090501

REACTIONS (3)
  - CHOLECYSTITIS CHRONIC [None]
  - CHOLECYSTECTOMY [None]
  - CHOLELITHIASIS [None]
